FAERS Safety Report 14774423 (Version 3)
Quarter: 2018Q2

REPORT INFORMATION
  Report Type: Spontaneous
  Country: US (occurrence: US)
  Receive Date: 20180418
  Receipt Date: 20180428
  Transmission Date: 20180711
  Serious: Yes (Hospitalization)
  Sender: FDA-Public Use
  Company Number: US-FRESENIUS MEDICAL CARE RENAL THERAPIES GROUP-FMC-1804-000734

PATIENT
  Sex: Female

DRUGS (7)
  1. MIDORINE [Concomitant]
     Active Substance: MIDODRINE
  2. DELFLEX [Suspect]
     Active Substance: CALCIUM CHLORIDE\DEXTROSE\MAGNESIUM CHLORIDE\SODIUM CHLORIDE\SODIUM LACTATE
     Indication: END STAGE RENAL DISEASE
     Route: 033
  3. CARVEDILOL. [Concomitant]
     Active Substance: CARVEDILOL
  4. ONDANSETRON [Concomitant]
     Active Substance: ONDANSETRON
  5. FERRIC CITRATE [Concomitant]
     Active Substance: TETRAFERRIC TRICITRATE DECAHYDRATE
  6. DOCUSATE SODIUM. [Concomitant]
     Active Substance: DOCUSATE SODIUM
  7. RENAPLEX [Concomitant]

REACTIONS (5)
  - Dyspnoea [Unknown]
  - Dizziness [Unknown]
  - Somnolence [Unknown]
  - Vomiting [Unknown]
  - Blood pressure decreased [Unknown]
